FAERS Safety Report 24123278 (Version 1)
Quarter: 2024Q3

REPORT INFORMATION
  Report Type: Spontaneous
  Country: US (occurrence: US)
  Receive Date: 20240723
  Receipt Date: 20240723
  Transmission Date: 20241017
  Serious: No
  Sender: OTSUKA
  Company Number: US-OTSUKA-2023_025716

PATIENT
  Sex: Female

DRUGS (1)
  1. REXULTI [Suspect]
     Active Substance: BREXPIPRAZOLE
     Indication: Product used for unknown indication
     Dosage: 4 MG (ONE 3MG PILL AND A FEW 1MG PILLS)
     Route: 065

REACTIONS (3)
  - Product use issue [Unknown]
  - Product availability issue [Unknown]
  - Expired product administered [Unknown]
